FAERS Safety Report 12865848 (Version 2)
Quarter: 2016Q4

REPORT INFORMATION
  Report Type: Spontaneous
  Country: US (occurrence: US)
  Receive Date: 20161020
  Receipt Date: 20161114
  Transmission Date: 20170207
  Serious: Yes (Hospitalization)
  Sender: FDA-Public Use
  Company Number: GXBR2016US003149

PATIENT
  Sex: Male
  Weight: 80.73 kg

DRUGS (8)
  1. PREDNISONE. [Concomitant]
     Active Substance: PREDNISONE
     Indication: ALPHA-1 ANTI-TRYPSIN DEFICIENCY
     Dosage: UNK DF, UNK
     Route: 065
  2. GLASSIA [Concomitant]
     Active Substance: .ALPHA.1-PROTEINASE INHIBITOR HUMAN
     Indication: ALPHA-1 ANTI-TRYPSIN DEFICIENCY
     Dosage: UNK DF, UNK
     Route: 065
  3. AMOXICILLIN AND CLAVULANATE POTASSIUM TABLETS USP [Suspect]
     Active Substance: AMOXICILLIN\CLAVULANATE POTASSIUM
     Indication: PNEUMONIA
     Dosage: 875/125 MG, BID
     Route: 048
     Dates: start: 20160927, end: 20160928
  4. THEOPHYLLINE [Concomitant]
     Active Substance: THEOPHYLLINE ANHYDROUS
     Indication: ALPHA-1 ANTI-TRYPSIN DEFICIENCY
     Dosage: UNK DF, UNK
     Route: 065
  5. SPIRIVA [Concomitant]
     Active Substance: TIOTROPIUM BROMIDE MONOHYDRATE
     Indication: ALPHA-1 ANTI-TRYPSIN DEFICIENCY
     Dosage: UNK DF, UNK
     Route: 065
  6. ADVAIR HFA [Concomitant]
     Active Substance: FLUTICASONE PROPIONATE\SALMETEROL XINAFOATE
     Indication: ALPHA-1 ANTI-TRYPSIN DEFICIENCY
     Dosage: UNK DF, UNK
     Route: 065
  7. ALBUTEROL. [Concomitant]
     Active Substance: ALBUTEROL
     Indication: ALPHA-1 ANTI-TRYPSIN DEFICIENCY
     Dosage: UNK DF, UNK
     Route: 065
  8. SOLU-MEDROL [Concomitant]
     Active Substance: METHYLPREDNISOLONE SODIUM SUCCINATE
     Indication: ALPHA-1 ANTI-TRYPSIN DEFICIENCY
     Dosage: UNK DF, UNK
     Route: 065

REACTIONS (2)
  - Stenotrophomonas infection [Recovering/Resolving]
  - Rash [Recovering/Resolving]
